FAERS Safety Report 15592338 (Version 8)
Quarter: 2019Q1

REPORT INFORMATION
  Report Type: Report from Study
  Country: BE (occurrence: BE)
  Receive Date: 20181106
  Receipt Date: 20190207
  Transmission Date: 20190417
  Serious: Yes (Hospitalization)
  Sender: FDA-Public Use
  Company Number: BE-PFIZER INC-2018430549

PATIENT
  Age: 72 Year
  Sex: Male
  Weight: 70 kg

DRUGS (18)
  1. RELVAR [Concomitant]
     Active Substance: FLUTICASONE FUROATE\VILANTEROL TRIFENATATE
     Dosage: 1 PUFF
     Route: 061
     Dates: start: 20050202
  2. COVERSYL /00790702/ [Concomitant]
     Active Substance: PERINDOPRIL
     Indication: HYPERTENSION
     Dosage: 5 MG, UNK
     Route: 048
     Dates: start: 2008
  3. CEFEPIME [Suspect]
     Active Substance: CEFEPIME HYDROCHLORIDE
     Indication: SEPSIS
     Dosage: 2 G, UNK
     Route: 042
     Dates: start: 20181010, end: 20181010
  4. MINITRAN [Concomitant]
     Active Substance: NITROGLYCERIN
     Indication: PROPHYLAXIS
     Dosage: 5 MG, 4X/DAY
     Dates: start: 2018
  5. CEFEPIME [Suspect]
     Active Substance: CEFEPIME HYDROCHLORIDE
     Dosage: 6 G, UNK
     Dates: start: 20181011, end: 20181014
  6. VINBLASTINE [Suspect]
     Active Substance: VINBLASTINE
     Indication: BLADDER CANCER
     Dosage: 5.55 MG,  CYCLIC (EVERY TWO WEEKS)
     Route: 042
     Dates: start: 20180904, end: 20181002
  7. OMEPRAZOLE. [Concomitant]
     Active Substance: OMEPRAZOLE
     Indication: ABDOMINAL PAIN UPPER
     Dosage: 20 MG, UNK
     Dates: start: 20180904
  8. LIPEGFILGRASTIM [Concomitant]
     Active Substance: LIPEGFILGRASTIM
     Indication: PROPHYLAXIS
     Dosage: 6 MG, UNK
     Route: 058
     Dates: start: 20181002
  9. BRETARIS [Concomitant]
     Active Substance: ACLIDINIUM BROMIDE
     Dosage: 2 PUFFS, 1X/DAY
     Route: 061
     Dates: start: 2010
  10. AVELUMAB [Suspect]
     Active Substance: AVELUMAB
     Indication: BLADDER CANCER
     Dosage: 720 MG, CYCLIC (EVERY TWO WEEKS)
     Route: 042
     Dates: start: 20180904, end: 20181002
  11. CISPLATIN. [Suspect]
     Active Substance: CISPLATIN
     Indication: BLADDER CANCER
     Dosage: 129 MG,  (EVERY TWO WEEKS)
     Route: 042
     Dates: start: 20180904, end: 20181001
  12. CEFEPIME [Suspect]
     Active Substance: CEFEPIME HYDROCHLORIDE
     Dosage: 4 G, UNK
     Dates: start: 20181015, end: 20181015
  13. BISOPROLOL [Concomitant]
     Active Substance: BISOPROLOL
     Indication: HYPERTENSION
     Dosage: 5 MG, UNK
     Route: 048
     Dates: start: 20061027
  14. SIMVASTATINE [Concomitant]
     Active Substance: SIMVASTATIN
     Indication: HYPERCHOLESTEROLAEMIA
     Dosage: 40 MG, UNK
     Route: 048
     Dates: start: 20181013
  15. METHOTREXATE SODIUM. [Suspect]
     Active Substance: METHOTREXATE SODIUM
     Indication: BLADDER CANCER
     Dosage: 55.5 MG, CYCLIC (EVERY TWO WEEKS)
     Route: 042
     Dates: start: 20180903, end: 20181001
  16. DOXORUBICIN HCL [Suspect]
     Active Substance: DOXORUBICIN HYDROCHLORIDE
     Indication: BLADDER CANCER
     Dosage: 55.5 MG, CYCLIC (EVERY TWO WEEKS)
     Route: 042
     Dates: start: 20180904, end: 20181002
  17. ASAFLOW [Concomitant]
     Active Substance: ASPIRIN
     Indication: PROPHYLAXIS
     Dosage: 80 MG, 4X/DAY
     Dates: start: 20061027
  18. TEMESTA /00273201/ [Concomitant]
     Active Substance: LORAZEPAM
     Indication: INSOMNIA
     Dosage: 1 MG, UNK
     Dates: start: 20180904

REACTIONS (2)
  - Sepsis [Recovered/Resolved]
  - Encephalopathy [Recovered/Resolved]

NARRATIVE: CASE EVENT DATE: 20181010
